FAERS Safety Report 8842922 (Version 1)
Quarter: 2012Q4

REPORT INFORMATION
  Report Type: 
  Country: BR (occurrence: BR)
  Receive Date: 20121016
  Receipt Date: 20121016
  Transmission Date: 20130627
  Serious: Yes (Hospitalization, Other)
  Sender: FDA-Public Use
  Company Number: BR-ELI_LILLY_AND_COMPANY-BR201210002585

PATIENT
  Age: 80 Year
  Sex: Female
  Weight: 50 kg

DRUGS (9)
  1. FORTEO [Suspect]
     Indication: OSTEOPOROSIS
     Dosage: UNK, qd
     Route: 058
     Dates: start: 201208
  2. CYMBALTA [Concomitant]
     Indication: PAIN
     Dosage: 1 DF, unknown
     Route: 065
  3. MORFINE [Concomitant]
     Indication: PAIN
     Dosage: 1 DF, unknown
     Route: 065
  4. LOSARTAN [Concomitant]
     Indication: BLOOD PRESSURE MANAGEMENT
     Dosage: 2 DF, unknown
     Route: 065
  5. CONDROFLEX [Concomitant]
     Indication: OSTEOARTHRITIS
     Dosage: UNK, qd
     Route: 065
  6. COLECALCIFEROL [Concomitant]
     Dosage: 8 DF, bid
     Route: 065
  7. COLECALCIFEROL [Concomitant]
     Dosage: 10 DF, qd
  8. AAS [Concomitant]
     Dosage: UNK, qd
     Route: 065
  9. OMEPRAZOL [Concomitant]
     Dosage: UNK, qd
     Route: 065

REACTIONS (3)
  - Ischaemic stroke [Recovered/Resolved]
  - Arteriosclerosis [Recovered/Resolved]
  - Hypovitaminosis [Unknown]
